FAERS Safety Report 11092476 (Version 1)
Quarter: 2015Q2

REPORT INFORMATION
  Report Type: Spontaneous
  Country: US (occurrence: US)
  Receive Date: 20150506
  Receipt Date: 20150506
  Transmission Date: 20150821
  Serious: Yes (Other)
  Sender: FDA-Public Use
  Company Number: US-ALEXION-A201501494

PATIENT

DRUGS (11)
  1. MEROPENEM. [Concomitant]
     Active Substance: MEROPENEM
     Indication: CYTOMEGALOVIRUS VIRAEMIA
     Route: 065
  2. MEROPENEM. [Concomitant]
     Active Substance: MEROPENEM
     Indication: PYELONEPHRITIS
  3. VANCOMYCIN [Concomitant]
     Active Substance: VANCOMYCIN
     Indication: PYELONEPHRITIS
  4. SOLIRIS [Suspect]
     Active Substance: ECULIZUMAB
     Indication: HAEMOLYTIC URAEMIC SYNDROME
     Dosage: 1200 MG, UNK
     Route: 042
  5. MEROPENEM. [Concomitant]
     Active Substance: MEROPENEM
     Indication: CITROBACTER INFECTION
  6. VANCOMYCIN [Concomitant]
     Active Substance: VANCOMYCIN
     Indication: CYTOMEGALOVIRUS VIRAEMIA
     Route: 065
  7. BELATACEPT [Concomitant]
     Active Substance: BELATACEPT
     Indication: IMMUNOSUPPRESSION
     Route: 065
  8. VALGANCICLOVIR [Concomitant]
     Active Substance: VALGANCICLOVIR
     Indication: CITROBACTER INFECTION
     Dosage: 450 MG, QD
     Route: 048
  9. VALGANCICLOVIR [Concomitant]
     Active Substance: VALGANCICLOVIR
     Indication: PYELONEPHRITIS
  10. VANCOMYCIN [Concomitant]
     Active Substance: VANCOMYCIN
     Indication: CITROBACTER INFECTION
  11. VALGANCICLOVIR [Concomitant]
     Active Substance: VALGANCICLOVIR
     Indication: CYTOMEGALOVIRUS VIRAEMIA
     Dosage: 450 MG, EVERY 48 HOURS
     Route: 065

REACTIONS (1)
  - Thrombotic microangiopathy [Recovered/Resolved]
